FAERS Safety Report 4279999-2 (Version None)
Quarter: 2004Q1

REPORT INFORMATION
  Report Type: 
  Country: None (occurrence: None)
  Receive Date: 20040126
  Receipt Date: 20040119
  Transmission Date: 20041129
  Serious: Yes (Other)
  Sender: FDA-Public Use
  Company Number: 2004-01-0952

PATIENT
  Age: 15 Year
  Sex: Female

DRUGS (3)
  1. TEMODAL [Suspect]
     Indication: GASTROINTESTINAL CARCINOMA
     Dosage: 125-250 MG* ORAL; 125 MG QD X5D; 250 MG QD X5D
     Route: 048
     Dates: start: 20031209, end: 20031213
  2. TEMODAL [Suspect]
     Indication: GASTROINTESTINAL CARCINOMA
     Dosage: 125-250 MG* ORAL; 125 MG QD X5D; 250 MG QD X5D
     Route: 048
     Dates: start: 20031209, end: 20040109
  3. TEMODAL [Suspect]
     Indication: GASTROINTESTINAL CARCINOMA
     Dosage: 125-250 MG* ORAL; 125 MG QD X5D; 250 MG QD X5D
     Route: 048
     Dates: start: 20040105, end: 20040109

REACTIONS (13)
  - ANAEMIA [None]
  - HAEMATOMA [None]
  - HAEMORRHAGE [None]
  - LYMPHADENOPATHY [None]
  - MASS [None]
  - MYALGIA [None]
  - NAUSEA [None]
  - NECROSIS [None]
  - NODULE [None]
  - PALLOR [None]
  - PLATELET COUNT INCREASED [None]
  - SPLEEN DISORDER [None]
  - WHITE BLOOD CELL COUNT INCREASED [None]
